FAERS Safety Report 23104977 (Version 1)
Quarter: 2023Q4

REPORT INFORMATION
  Report Type: Spontaneous
  Country: US (occurrence: None)
  Receive Date: 20231023
  Receipt Date: 20231023
  Transmission Date: 20240109
  Serious: Yes (Life-Threatening, Hospitalization)
  Sender: FDA-Public Use
  Company Number: None

PATIENT
  Age: 94 Year
  Sex: Male
  Weight: 70 kg

DRUGS (1)
  1. APIXABAN [Suspect]
     Active Substance: APIXABAN
     Dosage: FREQUENCY : TWICE A DAY;?
     Route: 048
     Dates: start: 20210410, end: 20230112

REACTIONS (5)
  - Gastrointestinal haemorrhage [None]
  - Thrombocytopenia [None]
  - Haemoglobin decreased [None]
  - Hiatus hernia [None]
  - Melaena [None]

NARRATIVE: CASE EVENT DATE: 20230112
